FAERS Safety Report 9730583 (Version 1)
Quarter: 2013Q4

REPORT INFORMATION
  Report Type: Spontaneous
  Country: US (occurrence: US)
  Receive Date: 20131202
  Receipt Date: 20131202
  Transmission Date: 20140711
  Serious: No
  Sender: FDA-Public Use
  Company Number: US-AMGEN-USASP2013078451

PATIENT
  Age: 67 Year
  Sex: Female

DRUGS (2)
  1. ENBREL [Suspect]
     Indication: RHEUMATOID ARTHRITIS
     Dosage: 50 MG, QWK
     Route: 065
     Dates: start: 20120419
  2. ENBREL [Suspect]
     Dosage: UNK
     Route: 065

REACTIONS (5)
  - Musculoskeletal discomfort [Recovered/Resolved]
  - Exostosis [Recovered/Resolved]
  - Local swelling [Recovered/Resolved]
  - Rotator cuff syndrome [Unknown]
  - Injection site oedema [Not Recovered/Not Resolved]
